FAERS Safety Report 16251849 (Version 1)
Quarter: 2019Q2

REPORT INFORMATION
  Report Type: Spontaneous
  Country: TW (occurrence: TW)
  Receive Date: 20190429
  Receipt Date: 20190429
  Transmission Date: 20190711
  Serious: Yes (Other)
  Sender: FDA-Public Use
  Company Number: TW-ELI_LILLY_AND_COMPANY-TW201904012446

PATIENT
  Age: 71 Year
  Sex: Male
  Weight: 73 kg

DRUGS (13)
  1. 5 FU [Concomitant]
     Active Substance: FLUOROURACIL
     Indication: ORAL NEOPLASM
     Dosage: 1000 MG, UNK
     Route: 065
     Dates: start: 20170418
  2. KEMOPLAT [Concomitant]
     Active Substance: CISPLATIN
     Indication: ORAL NEOPLASM
     Dosage: 144 MG, UNK
     Route: 065
  3. OPDIVO [Suspect]
     Active Substance: NIVOLUMAB
     Dosage: 20 MG, UNK
     Dates: start: 20170526
  4. OPDIVO [Suspect]
     Active Substance: NIVOLUMAB
     Dosage: 60 MG, UNK
     Dates: start: 20170615
  5. 5 FU [Concomitant]
     Active Substance: FLUOROURACIL
     Dosage: 445-450MG
     Dates: start: 20180116
  6. OPDIVO [Suspect]
     Active Substance: NIVOLUMAB
     Indication: ORAL NEOPLASM
     Dosage: 60 MG, UNK
     Route: 065
  7. KEMOPLAT [Concomitant]
     Active Substance: CISPLATIN
     Dosage: 90 MG, UNK
     Dates: start: 20170125
  8. 5 FU [Concomitant]
     Active Substance: FLUOROURACIL
     Dosage: 885 MG, UNK
     Dates: start: 20170615
  9. 5 FU [Concomitant]
     Active Substance: FLUOROURACIL
     Dosage: 875 MG, UNK
     Dates: start: 20170706
  10. 5 FU [Concomitant]
     Active Substance: FLUOROURACIL
     Dosage: 870-900MG
     Dates: start: 20170817
  11. NIVOLUMAB [Concomitant]
     Active Substance: NIVOLUMAB
     Indication: ORAL NEOPLASM
     Dosage: 100 MG, UNKNOWN
     Route: 065
  12. OPDIVO [Suspect]
     Active Substance: NIVOLUMAB
     Dosage: 100 MG, UNK
     Dates: start: 20171111
  13. ERBITUX [Suspect]
     Active Substance: CETUXIMAB
     Indication: ORAL NEOPLASM
     Dosage: 720 MG, UNKNOWN
     Route: 041
     Dates: start: 20171111, end: 20180224

REACTIONS (13)
  - Stomatitis [Unknown]
  - Hypothyroidism [Unknown]
  - Thrombocytopenia [Unknown]
  - Alopecia [Unknown]
  - Leukopenia [Unknown]
  - Neuropathy peripheral [Unknown]
  - Neutropenia [Unknown]
  - Vomiting [Unknown]
  - Anaemia [Unknown]
  - Rhabdomyolysis [Unknown]
  - Decreased appetite [Unknown]
  - Fatigue [Unknown]
  - Nausea [Unknown]

NARRATIVE: CASE EVENT DATE: 2017
